FAERS Safety Report 7716327-1 (Version None)
Quarter: 2011Q3

REPORT INFORMATION
  Report Type: 
  Country: None (occurrence: None)
  Receive Date: 20110829
  Receipt Date: 20110818
  Transmission Date: 20111222
  Serious: Yes (Other)
  Sender: FDA-Public Use
  Company Number: PHFR2011GB05022

PATIENT
  Age: 64 Year
  Sex: Female

DRUGS (1)
  1. PAMIDRONATE DISODIUM [Suspect]
     Indication: HYPERCALCAEMIA
     Dosage: 90.00 MG, UNK

REACTIONS (4)
  - HYPOTENSION [None]
  - PYREXIA [None]
  - SHOCK [None]
  - CIRCULATORY COLLAPSE [None]
